FAERS Safety Report 9632893 (Version 2)
Quarter: 2013Q4

REPORT INFORMATION
  Report Type: Report from Study
  Country: US (occurrence: US)
  Receive Date: 20131018
  Receipt Date: 20131018
  Transmission Date: 20140711
  Serious: Yes (Hospitalization, Other)
  Sender: FDA-Public Use
  Company Number: US-ABBVIE-13P-163-1061722-00

PATIENT
  Age: 32 Year
  Sex: Male

DRUGS (14)
  1. HUMIRA [Suspect]
     Indication: CROHN^S DISEASE
     Dates: start: 201211
  2. HUMIRA [Suspect]
     Dates: start: 201310
  3. ANESTHETICS [Suspect]
     Indication: SURGERY
     Dates: start: 201302, end: 201302
  4. B6 [Concomitant]
     Indication: PRODUCT USED FOR UNKNOWN INDICATION
  5. B 12 [Concomitant]
     Indication: PRODUCT USED FOR UNKNOWN INDICATION
  6. PHENERGAN [Concomitant]
     Indication: NAUSEA
     Dosage: 12.5MG EVERY 4 HOURS AS NEEDED
  7. IMURAN [Concomitant]
     Indication: PRODUCT USED FOR UNKNOWN INDICATION
  8. OMEPRAZOLE [Concomitant]
     Indication: PRODUCT USED FOR UNKNOWN INDICATION
     Dosage: 20 2 TABLETS TWICE DAILY
  9. ZOFRAN [Concomitant]
     Indication: PRODUCT USED FOR UNKNOWN INDICATION
  10. PERCOCET [Concomitant]
     Indication: PRODUCT USED FOR UNKNOWN INDICATION
  11. ASACOL [Concomitant]
     Indication: PRODUCT USED FOR UNKNOWN INDICATION
     Dosage: 800MG 4TABLETS THREE TIMES A DAY
  12. VIIBRYD [Concomitant]
     Indication: PRODUCT USED FOR UNKNOWN INDICATION
  13. ONDANSETRON [Concomitant]
     Indication: PRODUCT USED FOR UNKNOWN INDICATION
  14. LEVASIN [Concomitant]
     Indication: CROHN^S DISEASE
     Dosage: 0.125MG EVERY 8HOURS

REACTIONS (18)
  - Carpal tunnel syndrome [Unknown]
  - Limb discomfort [Unknown]
  - Injection site pain [Not Recovered/Not Resolved]
  - Asthenia [Not Recovered/Not Resolved]
  - Headache [Unknown]
  - Loss of consciousness [Unknown]
  - Loss of consciousness [Unknown]
  - Anaesthetic complication [Unknown]
  - Crohn^s disease [Unknown]
  - Vomiting [Unknown]
  - Gastrointestinal haemorrhage [Unknown]
  - Thrombosis [Unknown]
  - Nausea [Not Recovered/Not Resolved]
  - Haemorrhoids [Unknown]
  - Crohn^s disease [Unknown]
  - Fibromyalgia [Unknown]
  - Drug ineffective [Unknown]
  - Abdominal pain [Unknown]
